FAERS Safety Report 7494435-0 (Version None)
Quarter: 2011Q2

REPORT INFORMATION
  Report Type: 
  Country: None (occurrence: None)
  Receive Date: 20110520
  Receipt Date: 20110418
  Transmission Date: 20111010
  Serious: Yes (Hospitalization, Other)
  Sender: FDA-Public Use
  Company Number: US-BAYER-201041491NA

PATIENT
  Age: 39 Year
  Sex: Female
  Weight: 77.098 kg

DRUGS (5)
  1. ACETAMINOPHEN [Concomitant]
     Route: 048
  2. YASMIN [Suspect]
     Indication: ACNE
     Dosage: UNK
     Dates: start: 20050101, end: 20080101
  3. AMOXICILLIN [Concomitant]
     Route: 048
  4. ADVIL LIQUI-GELS [Concomitant]
     Route: 048
  5. YAZ [Suspect]
     Indication: ACNE
     Dosage: UNK
     Dates: start: 20050101, end: 20080101

REACTIONS (10)
  - INTRACRANIAL PRESSURE INCREASED [None]
  - VISUAL IMPAIRMENT [None]
  - PULMONARY EMBOLISM [None]
  - PULMONARY THROMBOSIS [None]
  - CEREBRAL THROMBOSIS [None]
  - DEAFNESS [None]
  - INJURY [None]
  - HYPOTHALAMO-PITUITARY DISORDER [None]
  - CEREBROVASCULAR ACCIDENT [None]
  - BRAIN INJURY [None]
